FAERS Safety Report 17091431 (Version 4)
Quarter: 2021Q2

REPORT INFORMATION
  Report Type: Spontaneous
  Country: US (occurrence: US)
  Receive Date: 20191129
  Receipt Date: 20210405
  Transmission Date: 20210716
  Serious: Yes (Death, Life-Threatening, Hospitalization, Other)
  Sender: FDA-Public Use
  Company Number: US-B.I. PHARMACEUTICALS,INC./RIDGEFIELD-2019-BI-116199

PATIENT
  Age: 54 Year
  Sex: Male
  Weight: 103.8 kg

DRUGS (6)
  1. ASPIRIN [ACETYLSALICYLIC ACID] [Concomitant]
     Active Substance: ASPIRIN
     Indication: PRODUCT USED FOR UNKNOWN INDICATION
     Route: 048
  2. CIPRO [Concomitant]
     Active Substance: CIPROFLOXACIN HYDROCHLORIDE
     Indication: PRODUCT USED FOR UNKNOWN INDICATION
  3. GLYXAMBI [Suspect]
     Active Substance: EMPAGLIFLOZIN\LINAGLIPTIN
     Indication: TYPE 2 DIABETES MELLITUS
     Dosage: 25MG/5MG
     Route: 048
     Dates: start: 20161213, end: 20170915
  4. LANTUS [Concomitant]
     Active Substance: INSULIN GLARGINE
     Indication: PRODUCT USED FOR UNKNOWN INDICATION
     Dosage: 100UNITS/1ML
  5. LISINOPRIL. [Concomitant]
     Active Substance: LISINOPRIL
     Indication: PRODUCT USED FOR UNKNOWN INDICATION
     Route: 048
  6. ATORVASTATIN CALCIUM. [Concomitant]
     Active Substance: ATORVASTATIN CALCIUM
     Indication: PRODUCT USED FOR UNKNOWN INDICATION
     Route: 048

REACTIONS (14)
  - Orchitis [Unknown]
  - Congestive cardiomyopathy [Unknown]
  - Fatigue [Unknown]
  - Sepsis [Unknown]
  - Dysarthria [Unknown]
  - Pulmonary embolism [Fatal]
  - Cardiac arrest [Unknown]
  - Lactic acidosis [Unknown]
  - Arteriosclerosis coronary artery [Unknown]
  - Asthenia [Unknown]
  - Deep vein thrombosis [Fatal]
  - Fournier^s gangrene [Unknown]
  - Gait disturbance [Unknown]
  - Memory impairment [Unknown]

NARRATIVE: CASE EVENT DATE: 201710
